FAERS Safety Report 8550754-8 (Version None)
Quarter: 2012Q3

REPORT INFORMATION
  Report Type: 
  Country: None (occurrence: None)
  Receive Date: 20120730
  Receipt Date: 20120229
  Transmission Date: 20120928
  Serious: No
  Sender: FDA-Public Use
  Company Number: US-009507513-2012SP016260

PATIENT

DRUGS (3)
  1. CLARITIN [Suspect]
     Indication: SINUSITIS
  2. CLARITIN [Suspect]
     Indication: NASOPHARYNGITIS
     Dosage: UNK UNK, ONCE
     Route: 048
     Dates: start: 20120229
  3. CLARITIN [Suspect]
     Indication: NASAL CONGESTION
     Dosage: 5 MG, UNKNOWN
     Route: 048
     Dates: start: 20110811, end: 20110815

REACTIONS (3)
  - OVERDOSE [None]
  - DRUG INEFFECTIVE FOR UNAPPROVED INDICATION [None]
  - OFF LABEL USE [None]
